FAERS Safety Report 6922096-5 (Version None)
Quarter: 2010Q3

REPORT INFORMATION
  Report Type: 
  Country: None (occurrence: None)
  Receive Date: 20100812
  Receipt Date: 20100803
  Transmission Date: 20110219
  Serious: Yes (Hospitalization, Other)
  Sender: FDA-Public Use
  Company Number: US-BAYER-200826325NA

PATIENT
  Age: 51 Year
  Sex: Female
  Weight: 64 kg

DRUGS (8)
  1. BETASERON [Suspect]
     Indication: RELAPSING-REMITTING MULTIPLE SCLEROSIS
     Dosage: TOTAL DAILY DOSE: 2 MIU
     Route: 058
     Dates: start: 20080118
  2. BETASERON [Suspect]
     Dosage: TOTAL DAILY DOSE: 2 MIU
     Route: 058
     Dates: start: 20080130, end: 20080208
  3. BETASERON [Suspect]
     Dosage: TOTAL DAILY DOSE: 8 MIU
     Route: 058
     Dates: start: 20080101
  4. BETASERON [Suspect]
     Dosage: BETAJECT
     Route: 058
  5. BETASERON [Suspect]
     Dosage: BETAJECT
     Route: 058
     Dates: end: 20100701
  6. ZYPREXA [Suspect]
     Dosage: STARTED POST BETASERON
     Dates: start: 20080101, end: 20080721
  7. EXTAVIA [Suspect]
     Dosage: TOTAL DAILY DOSE: 8 MIU
     Dates: start: 20100727
  8. PEPTOBISMOL [Concomitant]

REACTIONS (29)
  - ABDOMINAL DISCOMFORT [None]
  - ABDOMINAL PAIN UPPER [None]
  - ANXIETY [None]
  - BREAST CYST [None]
  - CONJUNCTIVITIS INFECTIVE [None]
  - CONSTIPATION [None]
  - DEPRESSION [None]
  - DIARRHOEA [None]
  - DIZZINESS [None]
  - HAEMORRHOIDS [None]
  - HEADACHE [None]
  - HEPATIC CYST [None]
  - HEPATIC LESION [None]
  - HEPATIC STEATOSIS [None]
  - HUNGER [None]
  - HYPERSOMNIA [None]
  - INSOMNIA [None]
  - MULTIPLE SCLEROSIS [None]
  - NAUSEA [None]
  - OEDEMA PERIPHERAL [None]
  - PYREXIA [None]
  - RENAL CYST [None]
  - RENAL MASS [None]
  - SWELLING FACE [None]
  - THROMBOSIS [None]
  - ULCER HAEMORRHAGE [None]
  - URINARY TRACT INFECTION [None]
  - VOMITING [None]
  - WEIGHT INCREASED [None]
